FAERS Safety Report 24006947 (Version 4)
Quarter: 2024Q3

REPORT INFORMATION
  Report Type: Spontaneous
  Country: FR (occurrence: FR)
  Receive Date: 20240624
  Receipt Date: 20240826
  Transmission Date: 20241016
  Serious: Yes (Other)
  Sender: MYLAN
  Company Number: FR-MYLANLABS-2024M1056825

PATIENT
  Age: 82 Year
  Sex: Female
  Weight: 46 kg

DRUGS (5)
  1. PREDNISONE [Suspect]
     Active Substance: PREDNISONE
     Indication: Arthritis
     Dosage: 40 MILLIGRAM, QD
     Route: 065
     Dates: start: 202309
  2. PREDNISONE [Suspect]
     Active Substance: PREDNISONE
     Dosage: 20 MILLIGRAM, QD (1/4 TABLET PER DAY)
     Route: 048
     Dates: start: 202401, end: 202402
  3. ACETAMINOPHEN [Concomitant]
     Active Substance: ACETAMINOPHEN
     Indication: Arthritis
     Dosage: UNK
     Route: 048
  4. LATANOPROST\TIMOLOL MALEATE [Concomitant]
     Active Substance: LATANOPROST\TIMOLOL MALEATE
     Indication: Glaucoma
     Dosage: 1 DOSAGE FORM, QD (1 DOSAGE FORM PER DAY IN THE EVENING)
     Route: 047
  5. COMBIGAN [Concomitant]
     Active Substance: BRIMONIDINE TARTRATE\TIMOLOL MALEATE
     Indication: Glaucoma
     Dosage: 1 DOSAGE FORM, QD (1 DOSAGE FORM PER DAY IN THE MORNING)
     Route: 047

REACTIONS (4)
  - Blindness [Not Recovered/Not Resolved]
  - Syncope [Unknown]
  - Malaise [Unknown]
  - Intentional product misuse [Unknown]

NARRATIVE: CASE EVENT DATE: 20230101
